FAERS Safety Report 7957300-8 (Version None)
Quarter: 2011Q4

REPORT INFORMATION
  Report Type: 
  Country: None (occurrence: None)
  Receive Date: 20111205
  Receipt Date: 20110927
  Transmission Date: 20120403
  Serious: No
  Sender: FDA-Public Use
  Company Number: US-BAYER-2011-093656

PATIENT
  Age: 81 Year
  Sex: Female
  Weight: 79 kg

DRUGS (4)
  1. COSOPT [Concomitant]
  2. ALEVE (CAPLET) [Suspect]
     Indication: ARTHRALGIA
     Dosage: 1 TAB QD
     Route: 048
     Dates: start: 20080301, end: 20081101
  3. GLUCOSAMINE W/CHONDROITIN SULFATE [Concomitant]
  4. MULTI-VITAMIN [Concomitant]

REACTIONS (1)
  - HEART RATE IRREGULAR [None]
